FAERS Safety Report 12206669 (Version 1)
Quarter: 2016Q1

REPORT INFORMATION
  Report Type: Spontaneous
  Country: US (occurrence: US)
  Receive Date: 20160324
  Receipt Date: 20160324
  Transmission Date: 20160526
  Serious: No
  Sender: FDA-Public Use
  Company Number: US-BAYER-2016-056945

PATIENT
  Age: 76 Year
  Sex: Male
  Weight: 86.17 kg

DRUGS (1)
  1. MIRALAX [Suspect]
     Active Substance: POLYETHYLENE GLYCOL 3350
     Dosage: ONE DOSE
     Route: 048
     Dates: start: 20160321, end: 20160323

REACTIONS (2)
  - Drug ineffective [None]
  - Dry mouth [None]

NARRATIVE: CASE EVENT DATE: 201603
